FAERS Safety Report 13940885 (Version 2)
Quarter: 2017Q3

REPORT INFORMATION
  Report Type: Spontaneous
  Country: US (occurrence: US)
  Receive Date: 20170906
  Receipt Date: 20170911
  Transmission Date: 20171127
  Serious: No
  Sender: FDA-Public Use
  Company Number: US-BAYER-2017-170509

PATIENT
  Age: 8 Year
  Sex: Female
  Weight: 32 kg

DRUGS (2)
  1. MIRALAX [Suspect]
     Active Substance: POLYETHYLENE GLYCOL 3350
     Indication: GASTROINTESTINAL DISORDER
     Dosage: UNK
     Dates: start: 20170904
  2. MIRALAX [Suspect]
     Active Substance: POLYETHYLENE GLYCOL 3350
     Indication: GASTROINTESTINAL DISORDER
     Dosage: 1 CAPFUL IN CUP OF LIQUID DOSE
     Route: 048
     Dates: start: 2014, end: 20170904

REACTIONS (4)
  - Drug prescribing error [Unknown]
  - Incorrect drug administration duration [Unknown]
  - Product contamination physical [None]
  - Poor quality drug administered [Unknown]

NARRATIVE: CASE EVENT DATE: 2014
